FAERS Safety Report 11859125 (Version 1)
Quarter: 2015Q4

REPORT INFORMATION
  Report Type: Spontaneous
  Country: US (occurrence: US)
  Receive Date: 20151222
  Receipt Date: 20151222
  Transmission Date: 20160305
  Serious: Yes (Other)
  Sender: FDA-Public Use
  Company Number: US-CIPLA LTD.-2015US09475

PATIENT

DRUGS (6)
  1. ABT-751 [Suspect]
     Active Substance: INVESTIGATIONAL PRODUCT
     Dosage: 150 MG, QD DAYS 1-14
     Route: 048
  2. BEVACIZUMAB [Suspect]
     Active Substance: BEVACIZUMAB
     Indication: COLORECTAL CANCER
     Dosage: 7.5 MG/KG, OVER 90 MINUTES ON DAY 1
     Route: 042
  3. IRINOTECAN [Suspect]
     Active Substance: IRINOTECAN
     Indication: COLORECTAL CANCER
     Dosage: 200 MG/M2, OVER TWO HOURS ON DAY 1
     Route: 042
  4. DEXAMETHASONE. [Suspect]
     Active Substance: DEXAMETHASONE
     Indication: PROPHYLAXIS OF NAUSEA AND VOMITING
     Route: 065
  5. CAPECITABINE. [Suspect]
     Active Substance: CAPECITABINE
     Indication: COLORECTAL CANCER
     Dosage: 1600 MG/M2, DIVIDED INTO TWICE DAILY DOSING DAYS 1-14
     Route: 048
  6. ABT-751 [Suspect]
     Active Substance: INVESTIGATIONAL PRODUCT
     Indication: COLORECTAL CANCER
     Dosage: 150 MG, QD AS MONOTHERAPY FROM DAY -14 TO DAY -8 DURING THE LEAD-IN PERIOD
     Route: 048

REACTIONS (1)
  - Hypokalaemia [Unknown]
